FAERS Safety Report 19648958 (Version 1)
Quarter: 2021Q3

REPORT INFORMATION
  Report Type: Spontaneous
  Country: CN (occurrence: CN)
  Receive Date: 20210802
  Receipt Date: 20210802
  Transmission Date: 20211014
  Serious: Yes (Other)
  Sender: FDA-Public Use
  Company Number: CN-PFIZER INC-202100944115

PATIENT
  Age: 45 Year
  Sex: Male
  Weight: 95 kg

DRUGS (1)
  1. CYTOSAR [Suspect]
     Active Substance: CYTARABINE
     Indication: SYMPTOMATIC TREATMENT
     Dosage: 0.2 G, 1X/DAY
     Route: 041
     Dates: start: 20210701, end: 20210706

REACTIONS (8)
  - Haemoglobin decreased [Unknown]
  - Respiratory rate increased [Unknown]
  - Nausea [Recovering/Resolving]
  - White blood cell count increased [Unknown]
  - Blood bilirubin increased [Unknown]
  - Vomiting [Recovering/Resolving]
  - Platelet count decreased [Unknown]
  - Blood bilirubin unconjugated increased [Unknown]

NARRATIVE: CASE EVENT DATE: 20210702
